FAERS Safety Report 18277572 (Version 2)
Quarter: 2020Q3

REPORT INFORMATION
  Report Type: Spontaneous
  Country: US (occurrence: US)
  Receive Date: 20200917
  Receipt Date: 20200921
  Transmission Date: 20201103
  Serious: Yes (Other)
  Sender: FDA-Public Use
  Company Number: US-PFIZER INC-2020355630

PATIENT
  Age: 40 Year
  Sex: Female

DRUGS (6)
  1. BEVACIZUMAB. [Suspect]
     Active Substance: BEVACIZUMAB
     Dosage: 7.5 MG/KG, EVERY 21 DAYS
  2. BEVACIZUMAB. [Suspect]
     Active Substance: BEVACIZUMAB
     Dosage: 7.5 MG/KG, EVERY 21 DAYS
     Dates: start: 20190227
  3. CAPECITABINE. [Suspect]
     Active Substance: CAPECITABINE
     Dosage: 1000 MG, 2X/DAY
     Dates: start: 20190227
  4. BEVACIZUMAB. [Suspect]
     Active Substance: BEVACIZUMAB
     Dosage: 7.5 MG/KG, EVERY 21 DAYS
     Dates: start: 20190508
  5. CAPECITABINE. [Suspect]
     Active Substance: CAPECITABINE
     Dosage: 500 MG, 2X/DAY
     Dates: start: 20190508
  6. CAPECITABINE. [Suspect]
     Active Substance: CAPECITABINE
     Dosage: 1500 MG, DAILY (500 MG AM AND 1000 MG PM)
     Dates: start: 20190712

REACTIONS (1)
  - Neuropathy peripheral [Unknown]
